FAERS Safety Report 8830000 (Version 1)
Quarter: 2012Q4

REPORT INFORMATION
  Report Type: 
  Country: US (occurrence: US)
  Receive Date: 20121008
  Receipt Date: 20121008
  Transmission Date: 20130627
  Serious: No
  Sender: FDA-Public Use
  Company Number: US-009507513-1210USA001549

PATIENT
  Age: 59 Year
  Sex: Male

DRUGS (12)
  1. VICTRELIS [Suspect]
     Indication: HEPATITIS C
     Dosage: 800 mg, tid Every 7-9 Hours
     Route: 048
  2. REBETOL [Suspect]
     Indication: HEPATITIS C
     Dosage: 200 mg, UNK
  3. PEGASYS [Suspect]
     Indication: HEPATITIS C
  4. PROPRANOLOL HYDROCHLORIDE [Concomitant]
     Dosage: 20 mg, UNK
  5. VITAMIN D (UNSPECIFIED) [Concomitant]
     Dosage: 400
  6. ASPIRIN [Concomitant]
     Dosage: 81 mg, UNK
  7. CYMBALTA [Concomitant]
     Dosage: 60 mg, UNK
  8. CYANOCOBALAMIN [Concomitant]
     Dosage: 1000 CR
  9. OMEPRAZOLE [Concomitant]
     Dosage: 20 mg, UNK
  10. LISINOPRIL [Concomitant]
     Dosage: 20 mg, UNK
  11. HUMALOG [Concomitant]
     Dosage: 100 ml, UNK
  12. LANTUS [Concomitant]
     Dosage: 100 ml, UNK

REACTIONS (1)
  - Insomnia [Unknown]
